FAERS Safety Report 8901221 (Version 1)
Quarter: 2012Q4

REPORT INFORMATION
  Report Type: 
  Country: US (occurrence: US)
  Receive Date: 20121108
  Receipt Date: 20121108
  Transmission Date: 20130627
  Serious: Yes (Hospitalization)
  Sender: FDA-Public Use
  Company Number: US-TEVA-368615USA

PATIENT
  Age: 50 Year
  Sex: Female

DRUGS (2)
  1. COPAXONE [Suspect]
     Indication: MULTIPLE SCLEROSIS
  2. ARIXTRA [Concomitant]
     Indication: COAGULOPATHY

REACTIONS (5)
  - Blood glucose increased [Unknown]
  - Demyelination [Unknown]
  - Heart rate decreased [Unknown]
  - Gait disturbance [Unknown]
  - Fatigue [Unknown]
